FAERS Safety Report 9234844 (Version 3)
Quarter: 2013Q2

REPORT INFORMATION
  Report Type: Spontaneous
  Country: BR (occurrence: BR)
  Receive Date: 20130416
  Receipt Date: 20130627
  Transmission Date: 20140414
  Serious: Yes (Other)
  Sender: FDA-Public Use
  Company Number: PHHY2013BR036090

PATIENT
  Age: 78 Year
  Sex: Female

DRUGS (1)
  1. BUFFERIN [Suspect]

REACTIONS (1)
  - Infarction [Unknown]
